FAERS Safety Report 7166649-0 (Version None)
Quarter: 2010Q4

REPORT INFORMATION
  Report Type: 
  Country: None (occurrence: None)
  Receive Date: 20101216
  Receipt Date: 20101207
  Transmission Date: 20110411
  Serious: Yes (Other)
  Sender: FDA-Public Use
  Company Number: US-ELI_LILLY_AND_COMPANY-US200910002085

PATIENT
  Age: 62 Year
  Sex: Male

DRUGS (2)
  1. EFFIENT [Suspect]
     Indication: THROMBOSIS IN DEVICE
     Dosage: 10 UNK, UNK
     Dates: start: 20090101, end: 20091001
  2. PLAVIX [Concomitant]

REACTIONS (1)
  - THROMBOSIS [None]
